FAERS Safety Report 26208780 (Version 1)
Quarter: 2025Q4

REPORT INFORMATION
  Report Type: Spontaneous
  Country: JP (occurrence: JP)
  Receive Date: 20251229
  Receipt Date: 20251229
  Transmission Date: 20260119
  Serious: Yes (Hospitalization, Other)
  Sender: GENUS LIFESCIENCES
  Company Number: JP-Genus_Lifesciences-USA-ALL0580202500145

PATIENT
  Age: 46 Year
  Sex: Male
  Weight: 90.2 kg

DRUGS (1)
  1. ACETAMINOPHEN\BUTALBITAL\CAFFEINE [Suspect]
     Active Substance: ACETAMINOPHEN\BUTALBITAL\CAFFEINE
     Indication: Suicide attempt
     Dosage: 10 G OF CAFFEINE, ONCE
     Route: 048
     Dates: start: 2025, end: 2025

REACTIONS (5)
  - Suicide attempt [Recovered/Resolved]
  - Toxicity to various agents [Recovered/Resolved]
  - Diabetic ketoacidosis [Recovered/Resolved]
  - Duodenal ulcer [Recovered/Resolved]
  - Oesophagitis [Recovered/Resolved]

NARRATIVE: CASE EVENT DATE: 20250101
